FAERS Safety Report 8516804-X (Version None)
Quarter: 2012Q3

REPORT INFORMATION
  Report Type: 
  Country: None (occurrence: None)
  Receive Date: 20120718
  Receipt Date: 20120704
  Transmission Date: 20120928
  Serious: Yes (Other)
  Sender: FDA-Public Use
  Company Number: JP-AMGEN-JPNSP2012043379

PATIENT
  Age: 62 Year
  Sex: Female

DRUGS (1)
  1. NESPO [Suspect]
     Indication: NEPHROGENIC ANAEMIA
     Dosage: 120 MUG, UNK
     Route: 065

REACTIONS (1)
  - APLASIA PURE RED CELL [None]
